FAERS Safety Report 16376874 (Version 3)
Quarter: 2019Q3

REPORT INFORMATION
  Report Type: Spontaneous
  Country: US (occurrence: US)
  Receive Date: 20190531
  Receipt Date: 20190912
  Transmission Date: 20191004
  Serious: Yes (Hospitalization)
  Sender: FDA-Public Use
  Company Number: US-PFIZER INC-2019229805

PATIENT
  Age: 79 Year
  Sex: Female

DRUGS (2)
  1. TIKOSYN [Suspect]
     Active Substance: DOFETILIDE
     Indication: ATRIAL FIBRILLATION
     Dosage: 0.125 MG, 2X/DAY
     Dates: start: 201811
  2. DIGOXIN. [Suspect]
     Active Substance: DIGOXIN
     Indication: ATRIAL FIBRILLATION
     Dosage: UNK
     Dates: start: 201811

REACTIONS (3)
  - Toxicity to various agents [Unknown]
  - Weight decreased [Unknown]
  - Drug ineffective [Not Recovered/Not Resolved]

NARRATIVE: CASE EVENT DATE: 201903
